FAERS Safety Report 5520284-6 (Version None)
Quarter: 2007Q4

REPORT INFORMATION
  Report Type: 
  Country: None (occurrence: None)
  Receive Date: 20071118
  Receipt Date: 20071108
  Transmission Date: 20080405
  Serious: No
  Sender: FDA-Public Use
  Company Number: US-ELI_LILLY_AND_COMPANY-US200711002038

PATIENT
  Age: 49 Year
  Sex: Female

DRUGS (5)
  1. CYMBALTA [Suspect]
     Indication: DEPRESSION
     Dosage: 30 MG, UNK
     Dates: start: 20070911, end: 20071015
  2. FLEXERIL [Concomitant]
     Dosage: 1 D/F, UNK
  3. LISINOPRIL [Concomitant]
     Dosage: 1 D/F, UNK
  4. ATENOLOL [Concomitant]
     Dosage: 1 D/F, UNK
  5. IBUPROFEN [Concomitant]
     Dosage: 1 D/F, UNK

REACTIONS (1)
  - ALANINE AMINOTRANSFERASE INCREASED [None]
